FAERS Safety Report 21974877 (Version 2)
Quarter: 2023Q1

REPORT INFORMATION
  Report Type: Spontaneous
  Country: ES (occurrence: ES)
  Receive Date: 20230209
  Receipt Date: 20230303
  Transmission Date: 20230417
  Serious: Yes (Hospitalization, Other)
  Sender: FDA-Public Use
  Company Number: ES-JNJFOC-20230204993

PATIENT
  Age: 66 Year
  Sex: Female

DRUGS (18)
  1. SPRAVATO [Suspect]
     Active Substance: ESKETAMINE
     Indication: Depression
     Dates: start: 202301
  2. SPRAVATO [Suspect]
     Active Substance: ESKETAMINE
     Dates: start: 2023
  3. OLANZAPINE [Concomitant]
     Active Substance: OLANZAPINE
     Dosage: UPTO 7.5 MG
     Route: 065
     Dates: start: 2020
  4. OLANZAPINE [Concomitant]
     Active Substance: OLANZAPINE
     Dosage: WITH DINNER
     Route: 065
  5. CITALOPRAM [Concomitant]
     Active Substance: CITALOPRAM HYDROBROMIDE
     Route: 065
     Dates: start: 2020
  6. CITALOPRAM [Concomitant]
     Active Substance: CITALOPRAM HYDROBROMIDE
     Dosage: IF THE PATIENT HAD TABLETS OF 20 MG, TAKE ONE AND A HALF.
     Route: 065
  7. VALPROATE SODIUM [Concomitant]
     Active Substance: VALPROATE SODIUM
     Dosage: 0-1-2
     Route: 065
  8. RIVOTRIL [Concomitant]
     Active Substance: CLONAZEPAM
     Indication: Anxiety
     Dosage: A MAXIMUM OF FOUR TIMES A DAY
     Route: 065
  9. RIVOTRIL [Concomitant]
     Active Substance: CLONAZEPAM
     Indication: Insomnia
  10. HYDROXOCOBALAMIN\PYRIDOXINE HYDROCHLORIDE\THIAMINE HYDROCHLORIDE [Concomitant]
     Active Substance: HYDROXOCOBALAMIN\PYRIDOXINE HYDROCHLORIDE\THIAMINE HYDROCHLORIDE
     Dosage: ONE TABLET WITH LUNCH
     Route: 065
  11. GLIMEPIRIDE [Concomitant]
     Active Substance: GLIMEPIRIDE
     Indication: Hypertension
     Dosage: WITH BREAKFAST
     Route: 065
  12. OMEPRAZOLE [Concomitant]
     Active Substance: OMEPRAZOLE
     Route: 065
  13. ATORVASTATIN [Concomitant]
     Active Substance: ATORVASTATIN
     Route: 065
  14. MIRTAZAPINE [Concomitant]
     Active Substance: MIRTAZAPINE
     Route: 065
     Dates: start: 2020
  15. RISPERIDONE [Concomitant]
     Active Substance: RISPERIDONE
     Route: 065
     Dates: start: 2021
  16. QUETIAPINE [Concomitant]
     Active Substance: QUETIAPINE
     Route: 065
     Dates: start: 202112
  17. ARIPIPRAZOLE [Concomitant]
     Active Substance: ARIPIPRAZOLE
     Route: 065
     Dates: start: 202112
  18. VALPROIC ACID [Concomitant]
     Active Substance: VALPROIC ACID
     Indication: Mania
     Route: 065

REACTIONS (9)
  - Supraventricular tachycardia [Recovered/Resolved]
  - Aortic valve incompetence [Unknown]
  - Regressive behaviour [Unknown]
  - Insomnia [Unknown]
  - Headache [Recovering/Resolving]
  - Tremor [Unknown]
  - Drug ineffective [Unknown]
  - Anxiety [Not Recovered/Not Resolved]
  - Nervousness [Unknown]

NARRATIVE: CASE EVENT DATE: 20230101
